FAERS Safety Report 6073062-6 (Version None)
Quarter: 2009Q1

REPORT INFORMATION
  Report Type: 
  Country: None (occurrence: None)
  Receive Date: 20090209
  Receipt Date: 20090209
  Transmission Date: 20090719
  Serious: Yes (Other)
  Sender: FDA-Public Use
  Company Number: None

PATIENT
  Age: 32 Year
  Sex: Female
  Weight: 77.5651 kg

DRUGS (2)
  1. PRIMACARE ONE 500 MG THER-RX CORP. [Suspect]
     Indication: BREAST FEEDING
     Dosage: 1 CAPSULE PER DAY PO
     Route: 048
     Dates: start: 20070115, end: 20090130
  2. PRIMACARE ONE 500 MG THER-RX CORP. [Suspect]
     Indication: PREGNANCY
     Dosage: 1 CAPSULE PER DAY PO
     Route: 048
     Dates: start: 20070115, end: 20090130

REACTIONS (3)
  - DIARRHOEA [None]
  - FEAR [None]
  - PRODUCT QUALITY ISSUE [None]
